FAERS Safety Report 10162290 (Version 1)
Quarter: 2014Q2

REPORT INFORMATION
  Report Type: Spontaneous
  Country: DK (occurrence: GB)
  Receive Date: 20140509
  Receipt Date: 20140509
  Transmission Date: 20141212
  Serious: Yes (Disabling, Other)
  Sender: FDA-Public Use
  Company Number: GB-FRI-1000067138

PATIENT
  Age: 80 Year
  Sex: Male

DRUGS (1)
  1. MEMANTINE [Suspect]
     Indication: MEMORY IMPAIRMENT
     Dosage: 5 MG
     Route: 048
     Dates: start: 20140115, end: 20140220

REACTIONS (3)
  - Malaise [Recovered/Resolved]
  - Decreased appetite [Recovered/Resolved]
  - Fatigue [Recovered/Resolved]
